FAERS Safety Report 5626654-X (Version None)
Quarter: 2008Q1

REPORT INFORMATION
  Report Type: 
  Country: None (occurrence: None)
  Receive Date: 20080214
  Receipt Date: 20080124
  Transmission Date: 20080703
  Serious: No
  Sender: FDA-Public Use
  Company Number: US-BOEHRINGER INGELHEIM GMBH, GERMANY-2008-BP-01206BP

PATIENT
  Age: 91 Year
  Sex: Male

DRUGS (11)
  1. FLOMAX [Suspect]
     Indication: BENIGN PROSTATIC HYPERPLASIA
     Route: 048
     Dates: start: 20071101
  2. FLOMAX [Suspect]
     Route: 048
  3. FLOMAX [Suspect]
     Route: 048
     Dates: end: 20080123
  4. LASIX [Suspect]
     Route: 042
     Dates: start: 20071101
  5. COREG [Suspect]
  6. COREG [Suspect]
  7. COREG [Suspect]
  8. PROSCAR [Concomitant]
  9. DIGOXIN [Concomitant]
  10. AMIODARONE HCL [Concomitant]
  11. SYNTHROID [Concomitant]

REACTIONS (1)
  - BLOOD PRESSURE DECREASED [None]
